FAERS Safety Report 9264200 (Version 1)
Quarter: 2013Q2

REPORT INFORMATION
  Report Type: Spontaneous
  Country: PT (occurrence: PT)
  Receive Date: 20130430
  Receipt Date: 20130430
  Transmission Date: 20140414
  Serious: Yes (Other)
  Sender: FDA-Public Use
  Company Number: PT-TEVA-399556ISR

PATIENT
  Age: 75 Year
  Sex: Male
  Weight: 90 kg

DRUGS (10)
  1. OXALIPLATINA TEVA [Suspect]
     Indication: COLON CANCER METASTATIC
     Dosage: 170MG EM 250ML DE GLUCOSE 5% EM PERFUS?O IV E EM CICLOS DE 21 DIAS
     Route: 042
     Dates: start: 20130226, end: 20130409
  2. ONDANSETROM [Concomitant]
     Indication: COLON CANCER METASTATIC
     Dosage: 12/12 HORAS.
     Route: 048
  3. ONDANSETROM [Concomitant]
     Route: 042
  4. DEXAMETASONA [Concomitant]
     Indication: COLON CANCER METASTATIC
     Route: 042
  5. GLUCONATO DE C?LCIO [Concomitant]
     Indication: COLON CANCER METASTATIC
     Route: 042
  6. SULFATO DE MAGN?SIO [Concomitant]
     Indication: COLON CANCER METASTATIC
     Dosage: 2 VEZES POR CLICLO.
     Route: 042
  7. ?CIDO FOL?NICO [Concomitant]
     Indication: COLON CANCER METASTATIC
     Route: 042
  8. FLUOROURACILO [Concomitant]
     Indication: COLON CANCER METASTATIC
     Dosage: 800MG EM BOL?S + 4800MG EM PERFUSOR DE 48 HORAS.
     Route: 042
  9. SINVASTATINA [Concomitant]
     Indication: COLON CANCER METASTATIC
     Route: 048
  10. RAMIPRIL [Concomitant]
     Route: 042

REACTIONS (3)
  - Pruritus [Recovered/Resolved]
  - Tremor [Recovered/Resolved]
  - Pruritus [Recovered/Resolved]
